FAERS Safety Report 18723496 (Version 1)
Quarter: 2021Q1

REPORT INFORMATION
  Report Type: Spontaneous
  Country: US (occurrence: US)
  Receive Date: 20210108
  Receipt Date: 20210108
  Transmission Date: 20210419
  Serious: Yes (Hospitalization)
  Sender: FDA-Public Use
  Company Number: None

PATIENT
  Age: 67 Year
  Sex: Female

DRUGS (17)
  1. CALCITRIOL 0.25MCG [Concomitant]
     Dates: start: 20201201
  2. TIROSINT 150MCG [Concomitant]
     Dates: start: 20201201
  3. MYCOPHENOLATE 250MG [Concomitant]
     Active Substance: MYCOPHENOLIC ACID
     Dates: start: 20201201
  4. ENVARSUS XR [Suspect]
     Active Substance: TACROLIMUS
     Indication: RENAL TRANSPLANT
     Route: 048
  5. VITAMIN D 50000 [Concomitant]
     Dates: start: 20201201
  6. DOK 100MG [Concomitant]
     Dates: start: 20201201
  7. FAMOTIDINE 40MG [Concomitant]
     Active Substance: FAMOTIDINE
     Dates: start: 20201201
  8. PREDNISONE 5MG [Concomitant]
     Active Substance: PREDNISONE
     Dates: start: 20201201
  9. VALGANCICLOVIR 450MG [Concomitant]
     Active Substance: VALACYCLOVIR HYDROCHLORIDE
     Dates: start: 20201201
  10. AMLODIPINE [Concomitant]
     Active Substance: AMLODIPINE BESYLATE
     Dates: start: 20201201
  11. ATORVASTATIN 40MG [Concomitant]
     Active Substance: ATORVASTATIN
     Dates: start: 20201201
  12. CARVEDILOL 12.5MG [Concomitant]
     Active Substance: CARVEDILOL
     Dates: start: 20201201
  13. MAG 64 [Concomitant]
     Dates: start: 20201201
  14. NOVOLOG [Concomitant]
     Active Substance: INSULIN ASPART
     Dates: start: 20201201
  15. ALPRAZOLAM 1MG [Concomitant]
     Active Substance: ALPRAZOLAM
     Dates: start: 20201201
  16. BACTRIUM 400/80 [Concomitant]
     Dates: start: 20201201
  17. TRAMADOLOL 50MG [Concomitant]
     Dates: start: 20201201

REACTIONS (1)
  - Renal haemorrhage [None]

NARRATIVE: CASE EVENT DATE: 20201230
